FAERS Safety Report 23336384 (Version 1)
Quarter: 2023Q4

REPORT INFORMATION
  Report Type: Report from Study
  Country: GR (occurrence: GR)
  Receive Date: 20231225
  Receipt Date: 20231225
  Transmission Date: 20240110
  Serious: Yes (Hospitalization, Other)
  Sender: FDA-Public Use
  Company Number: GR-ABBVIE-5546493

PATIENT
  Sex: Female
  Weight: 65 kg

DRUGS (4)
  1. CARBIDOPA\LEVODOPA [Suspect]
     Active Substance: CARBIDOPA\LEVODOPA
     Indication: Parkinson^s disease
     Dosage: MORNING DOSE: 7.1ML; CONTINUOUS RATE: 1.4ML/H; EXTRA DOSE: 0.7ML?LAST ADMIN DATE: 2023
     Route: 050
     Dates: start: 20231127
  2. CARBIDOPA\LEVODOPA [Suspect]
     Active Substance: CARBIDOPA\LEVODOPA
     Dosage: MORNING DOSE: 7.0ML; CONTINUOUS RATE: 1.4ML/H; EXTRA DOSE: 0.7ML?FIRST ADMIN DATE : 2023
     Route: 050
     Dates: end: 20231217
  3. SPASMO APOTEL [Concomitant]
     Indication: Product used for unknown indication
  4. RABEPRAZOLE SODIUM [Concomitant]
     Active Substance: RABEPRAZOLE SODIUM
     Indication: Product used for unknown indication

REACTIONS (8)
  - Device leakage [Not Recovered/Not Resolved]
  - Flatulence [Not Recovered/Not Resolved]
  - Stoma site pain [Recovering/Resolving]
  - Abdominal pain [Not Recovered/Not Resolved]
  - C-reactive protein increased [Not Recovered/Not Resolved]
  - White blood cell count increased [Not Recovered/Not Resolved]
  - Peritonitis [Recovering/Resolving]
  - Device issue [Recovering/Resolving]

NARRATIVE: CASE EVENT DATE: 20230101
